FAERS Safety Report 11662595 (Version 8)
Quarter: 2024Q3

REPORT INFORMATION
  Report Type: Report from Study
  Country: CA (occurrence: CA)
  Receive Date: 20151027
  Receipt Date: 20240716
  Transmission Date: 20241016
  Serious: Yes (Hospitalization)
  Sender: ROCHE
  Company Number: CA-ROCHE-1650804

PATIENT
  Age: 7 Year
  Sex: Male

DRUGS (5)
  1. XOLAIR [Suspect]
     Active Substance: OMALIZUMAB
     Indication: Asthma
     Route: 058
     Dates: start: 20130808
  2. XOLAIR [Suspect]
     Active Substance: OMALIZUMAB
     Route: 058
     Dates: start: 20151222
  3. XOLAIR [Suspect]
     Active Substance: OMALIZUMAB
     Dosage: 2 VIALS OF 150 MG AND 1 VIAL OF 75 MG.
     Route: 058
     Dates: start: 20190926
  4. XOLAIR [Suspect]
     Active Substance: OMALIZUMAB
     Route: 058
     Dates: start: 20150130
  5. XOLAIR [Suspect]
     Active Substance: OMALIZUMAB
     Route: 058

REACTIONS (8)
  - Asthma [Recovering/Resolving]
  - Allergy to animal [Unknown]
  - Influenza [Unknown]
  - Wheezing [Unknown]
  - Weight increased [Unknown]
  - Hypersensitivity [Unknown]
  - Injection site urticaria [Unknown]
  - Abdominal pain [Recovered/Resolved]

NARRATIVE: CASE EVENT DATE: 20150501
